FAERS Safety Report 9054978 (Version 2)
Quarter: 2013Q1

REPORT INFORMATION
  Report Type: Report from Study
  Country: CA (occurrence: CA)
  Receive Date: 20130208
  Receipt Date: 20130211
  Transmission Date: 20140127
  Serious: Yes (Other)
  Sender: FDA-Public Use
  Company Number: CA-ABBOTT-13P-028-1046656-00

PATIENT
  Sex: Female
  Weight: 97.61 kg

DRUGS (7)
  1. HUMIRA [Suspect]
     Indication: CROHN^S DISEASE
     Route: 058
     Dates: start: 20091219, end: 20130102
  2. CIPRALEX [Concomitant]
     Indication: DEPRESSION
     Route: 048
     Dates: start: 201201
  3. MESASAL [Concomitant]
     Indication: CROHN^S DISEASE
     Route: 048
     Dates: start: 2005
  4. ENTOCORT [Concomitant]
     Indication: CROHN^S DISEASE
     Route: 048
  5. MORPHINE [Concomitant]
     Indication: CROHN^S DISEASE
     Route: 048
  6. GRAVOL [Concomitant]
     Indication: NAUSEA
     Route: 048
  7. XANAX [Concomitant]
     Indication: ANXIETY
     Route: 048

REACTIONS (2)
  - Arteriovenous fistula site complication [Unknown]
  - Fistula [Unknown]
